FAERS Safety Report 15334108 (Version 4)
Quarter: 2019Q1

REPORT INFORMATION
  Report Type: Spontaneous
  Country: ES (occurrence: ES)
  Receive Date: 20180830
  Receipt Date: 20190327
  Transmission Date: 20190417
  Serious: Yes (Other)
  Sender: FDA-Public Use
  Company Number: PHHY2018ES082710

PATIENT
  Age: 54 Year
  Sex: Female

DRUGS (10)
  1. BARICITINIB [Suspect]
     Active Substance: BARICITINIB
     Indication: RHEUMATOID ARTHRITIS
     Dosage: UNK
     Route: 048
  2. ATORVASTATIN [Suspect]
     Active Substance: ATORVASTATIN
     Indication: BLOOD TRIGLYCERIDES ABNORMAL
     Dosage: 40 MG, UNK
     Route: 065
  3. GOLD [Concomitant]
     Active Substance: GOLD
     Indication: PRODUCT USED FOR UNKNOWN INDICATION
     Dosage: UNK
     Route: 065
  4. BARICITINIB [Suspect]
     Active Substance: BARICITINIB
     Dosage: UNK
     Route: 048
  5. BARICITINIB [Suspect]
     Active Substance: BARICITINIB
     Dosage: 1 DF, UNKNOWN
     Route: 048
  6. PREDNISONA [Concomitant]
     Active Substance: PREDNISONE
     Indication: PRODUCT USED FOR UNKNOWN INDICATION
     Dosage: UNK
     Route: 065
  7. BARICITINIB [Suspect]
     Active Substance: BARICITINIB
     Dosage: 4 MG, QD
     Route: 048
     Dates: start: 20180102
  8. BARICITINIB [Suspect]
     Active Substance: BARICITINIB
     Dosage: 4 MG, QD
     Route: 048
     Dates: start: 20180102
  9. ATORVASTATIN [Suspect]
     Active Substance: ATORVASTATIN
     Indication: TRANSAMINASES ABNORMAL
     Dosage: 30 MG, UNK
     Route: 065
  10. BARICITINIB [Suspect]
     Active Substance: BARICITINIB
     Dosage: 1 DF, UNKNOWN
     Route: 048

REACTIONS (10)
  - Gastroenteritis [Recovering/Resolving]
  - Diabetic metabolic decompensation [Unknown]
  - Blood cholesterol abnormal [Recovering/Resolving]
  - Nervousness [Unknown]
  - Blood triglycerides increased [Recovering/Resolving]
  - Platelet count increased [Unknown]
  - Transaminases increased [Recovering/Resolving]
  - White blood cell disorder [Recovering/Resolving]
  - Nodule [Recovering/Resolving]
  - Blood iron abnormal [Unknown]

NARRATIVE: CASE EVENT DATE: 20180424
